FAERS Safety Report 12469718 (Version 2)
Quarter: 2016Q3

REPORT INFORMATION
  Report Type: Spontaneous
  Country: CN (occurrence: CN)
  Receive Date: 20160615
  Receipt Date: 20160707
  Transmission Date: 20161109
  Serious: Yes (Other)
  Sender: FDA-Public Use
  Company Number: CN-ASTRAZENECA-2016SE64463

PATIENT
  Age: 78 Year
  Sex: Female

DRUGS (1)
  1. IRESSA [Suspect]
     Active Substance: GEFITINIB
     Indication: SMALL CELL LUNG CANCER
     Route: 048
     Dates: start: 201411, end: 201604

REACTIONS (13)
  - Tension headache [Unknown]
  - Loss of consciousness [Unknown]
  - Cerebral calcification [Unknown]
  - Dizziness [Not Recovered/Not Resolved]
  - Language disorder [Unknown]
  - Cerebral atrophy [Unknown]
  - Vomiting [Unknown]
  - Decreased appetite [Unknown]
  - Rash pruritic [Recovering/Resolving]
  - Chest discomfort [Unknown]
  - Hiccups [Unknown]
  - Gait disturbance [Not Recovered/Not Resolved]
  - Head discomfort [Not Recovered/Not Resolved]

NARRATIVE: CASE EVENT DATE: 2015
